FAERS Safety Report 4635176-4 (Version None)
Quarter: 2005Q2

REPORT INFORMATION
  Report Type: 
  Country: None (occurrence: None)
  Receive Date: 20050414
  Receipt Date: 20050311
  Transmission Date: 20051028
  Serious: Yes (Other)
  Sender: FDA-Public Use
  Company Number: DE-GLAXOSMITHKLINE-D0046138A

PATIENT
  Age: 78 Year
  Sex: Male

DRUGS (1)
  1. LAMICTAL [Suspect]
     Route: 065

REACTIONS (1)
  - MANTLE CELL LYMPHOMA RECURRENT [None]
